FAERS Safety Report 4588366-3 (Version None)
Quarter: 2005Q1

REPORT INFORMATION
  Report Type: 
  Country: None (occurrence: None)
  Receive Date: 20050216
  Receipt Date: 20050216
  Transmission Date: 20050727
  Serious: Yes (Other)
  Sender: FDA-Public Use
  Company Number: None

PATIENT
  Age: 71 Year
  Sex: Female
  Weight: 52.1637 kg

DRUGS (2)
  1. EVISTA [Suspect]
     Indication: OSTEOPOROSIS
     Dosage: ORAL - DAILY
     Route: 048
  2. SYNTHROID [Concomitant]

REACTIONS (2)
  - BREAST CANCER FEMALE [None]
  - UTERINE POLYP [None]
